FAERS Safety Report 4802291-1 (Version None)
Quarter: 2005Q4

REPORT INFORMATION
  Report Type: 
  Country: None (occurrence: None)
  Receive Date: 20051012
  Receipt Date: 20051006
  Transmission Date: 20060501
  Serious: Yes (Hospitalization)
  Sender: FDA-Public Use
  Company Number: USA-2005-0021426

PATIENT
  Age: 68 Year
  Sex: Female

DRUGS (2)
  1. MS CONTIN [Suspect]
     Indication: NEUROPATHY
     Dosage: 30 MG, BID, ORAL
     Route: 048
     Dates: start: 19950101
  2. ATIVAN [Suspect]
     Indication: DRUG USE FOR UNKNOWN INDICATION

REACTIONS (4)
  - HEADACHE [None]
  - MALAISE [None]
  - MENTAL STATUS CHANGES [None]
  - NERVOUSNESS [None]
